FAERS Safety Report 10052300 (Version 4)
Quarter: 2014Q2

REPORT INFORMATION
  Report Type: Report from Study
  Country: TH (occurrence: TH)
  Receive Date: 20140402
  Receipt Date: 20140422
  Transmission Date: 20141212
  Serious: Yes (Hospitalization)
  Sender: FDA-Public Use
  Company Number: TH-EISAI INC-E2007-01352-CLI-TH

PATIENT
  Age: 12 Year
  Sex: Male
  Weight: 42.6 kg

DRUGS (6)
  1. E2007 (PERAMPANEL) [Suspect]
     Indication: PARTIAL SEIZURES
     Dosage: CORE STUDY-DOUBLE BLIND
     Route: 048
     Dates: start: 20130102, end: 20130521
  2. E2007 (PERAMPANEL) [Suspect]
     Dosage: CONVERSION PERIOD
     Route: 048
     Dates: start: 20130522, end: 20130701
  3. E2007 (PERAMPANEL) [Suspect]
     Route: 048
     Dates: start: 20130702
  4. VALPROIC ACID [Concomitant]
  5. PHENYTOIN [Concomitant]
  6. LEVETIRACETAM [Concomitant]

REACTIONS (1)
  - Simple partial seizures [Recovered/Resolved]
